FAERS Safety Report 19157940 (Version 1)
Quarter: 2021Q2

REPORT INFORMATION
  Report Type: Spontaneous
  Country: FR (occurrence: FR)
  Receive Date: 20210420
  Receipt Date: 20210420
  Transmission Date: 20210717
  Serious: Yes (Hospitalization)
  Sender: FDA-Public Use
  Company Number: NVSC2021FR084379

PATIENT
  Age: 33 Year
  Sex: Female

DRUGS (5)
  1. KETOPROFEN. [Suspect]
     Active Substance: KETOPROFEN
     Indication: PRODUCT USED FOR UNKNOWN INDICATION
     Dosage: UNK (NON RENSEIGNEE)
     Route: 042
     Dates: start: 20191118, end: 20191123
  2. TAZOBACTAM [Suspect]
     Active Substance: TAZOBACTAM
     Indication: ABSCESS
     Dosage: UNK (NON RENSEIGNEE)
     Route: 042
     Dates: start: 20191118, end: 20191125
  3. METRONIDAZOLE. [Suspect]
     Active Substance: METRONIDAZOLE
     Indication: ABSCESS
     Dosage: UNK (NON RENSEIGNEE)
     Route: 042
     Dates: start: 20191118, end: 20191125
  4. PANTOPRAZOLE [Suspect]
     Active Substance: PANTOPRAZOLE
     Indication: PRODUCT USED FOR UNKNOWN INDICATION
     Dosage: UNK (NON RENSEIGNEE)
     Route: 042
     Dates: start: 20191118, end: 20191125
  5. PIPERACILLIN. [Suspect]
     Active Substance: PIPERACILLIN SODIUM
     Indication: ABSCESS
     Dosage: UNK (NON RENSEIGNEE)
     Route: 042
     Dates: start: 20191118, end: 20191125

REACTIONS (1)
  - Neutropenia [Not Recovered/Not Resolved]

NARRATIVE: CASE EVENT DATE: 20191125
